FAERS Safety Report 9485871 (Version 2)
Quarter: 2013Q4

REPORT INFORMATION
  Report Type: Report from Study
  Country: AU (occurrence: AU)
  Receive Date: 20130829
  Receipt Date: 20131028
  Transmission Date: 20140711
  Serious: Yes (Death, Hospitalization)
  Sender: FDA-Public Use
  Company Number: PHHY2013AU093159

PATIENT
  Age: 80 Year
  Sex: Female

DRUGS (1)
  1. SANDOSTATIN LAR [Suspect]
     Indication: CARCINOID SYNDROME
     Dosage: 20 MG, UNK
     Route: 030

REACTIONS (3)
  - Death [Fatal]
  - Lung neoplasm malignant [Unknown]
  - Dyspnoea [Unknown]
